FAERS Safety Report 7014136-2 (Version None)
Quarter: 2010Q3

REPORT INFORMATION
  Report Type: 
  Country: None (occurrence: None)
  Receive Date: 20100927
  Receipt Date: 20100916
  Transmission Date: 20110219
  Serious: No
  Sender: FDA-Public Use
  Company Number: PHHY2010US61940

PATIENT
  Sex: Male
  Weight: 104 kg

DRUGS (8)
  1. TASIGNA [Suspect]
     Indication: NEOPLASM MALIGNANT
     Dosage: 400 MG, BID
     Route: 048
     Dates: start: 20100825
  2. GLUCOPHAGE [Concomitant]
  3. VYTORIN [Concomitant]
  4. FENOFIBRATE [Concomitant]
  5. WARFARIN [Concomitant]
  6. IRON [Concomitant]
  7. LASIX [Concomitant]
  8. POTASSIUM [Concomitant]

REACTIONS (2)
  - BLOOD GLUCOSE DECREASED [None]
  - LABELLED DRUG-FOOD INTERACTION MEDICATION ERROR [None]
